FAERS Safety Report 4911696-X (Version None)
Quarter: 2006Q1

REPORT INFORMATION
  Report Type: 
  Country: None (occurrence: None)
  Receive Date: 20060213
  Receipt Date: 20060201
  Transmission Date: 20060701
  Serious: Yes (Other)
  Sender: FDA-Public Use
  Company Number: 2006017691

PATIENT
  Age: 25 Year
  Sex: Male

DRUGS (2)
  1. ZOLOFT [Suspect]
     Indication: OBSESSIVE-COMPULSIVE DISORDER
     Dosage: ORAL
     Route: 048
     Dates: start: 20050901
  2. FOLIC ACID [Concomitant]

REACTIONS (15)
  - ABNORMAL BEHAVIOUR [None]
  - BONE SWELLING [None]
  - CONVULSION [None]
  - DEPRESSED LEVEL OF CONSCIOUSNESS [None]
  - DROOLING [None]
  - ENURESIS [None]
  - FALL [None]
  - FATIGUE [None]
  - INJURY [None]
  - MEMORY IMPAIRMENT [None]
  - NASAL CONGESTION [None]
  - PERIORBITAL HAEMATOMA [None]
  - SPEECH DISORDER [None]
  - TONGUE BITING [None]
  - WEIGHT INCREASED [None]
